FAERS Safety Report 5957993-0 (Version None)
Quarter: 2008Q4

REPORT INFORMATION
  Report Type: 
  Country: None (occurrence: None)
  Receive Date: 20081119
  Receipt Date: 20081113
  Transmission Date: 20090506
  Serious: Yes (Hospitalization, Other)
  Sender: FDA-Public Use
  Company Number: DE-AVENTIS-200812878DE

PATIENT
  Age: 82 Year
  Sex: Female

DRUGS (1)
  1. CLEXANE [Suspect]
     Route: 058
     Dates: start: 20080317, end: 20080404

REACTIONS (3)
  - INFECTION [None]
  - POST PROCEDURAL HAEMATOMA [None]
  - SEROMA [None]
